FAERS Safety Report 16606570 (Version 3)
Quarter: 2020Q2

REPORT INFORMATION
  Report Type: Spontaneous
  Country: JP (occurrence: JP)
  Receive Date: 20190722
  Receipt Date: 20200522
  Transmission Date: 20200713
  Serious: Yes (Other)
  Sender: FDA-Public Use
  Company Number: JP-ROCHE-2336765

PATIENT
  Age: 60 Year
  Sex: Female

DRUGS (4)
  1. PACLITAXEL. [Suspect]
     Active Substance: PACLITAXEL
     Indication: LUNG ADENOCARCINOMA
     Dosage: DOSAGE IS UNCERTAIN.
     Route: 041
     Dates: start: 20190509
  2. TECENTRIQ [Suspect]
     Active Substance: ATEZOLIZUMAB
     Indication: LUNG ADENOCARCINOMA
     Dosage: DOSAGE IS UNCERTAIN.
     Route: 041
     Dates: start: 20190509
  3. CARBOPLATIN. [Suspect]
     Active Substance: CARBOPLATIN
     Indication: LUNG ADENOCARCINOMA
     Dosage: DOSAGE IS UNCERTAIN.
     Route: 041
     Dates: start: 20190509
  4. AVASTIN [Suspect]
     Active Substance: BEVACIZUMAB
     Indication: LUNG ADENOCARCINOMA
     Dosage: DOSAGE IS UNCERTAIN.
     Route: 041
     Dates: start: 20190509

REACTIONS (6)
  - Hypoaesthesia [Unknown]
  - White blood cell count decreased [Recovered/Resolved]
  - Platelet count decreased [Recovered/Resolved]
  - Neutrophil count decreased [Recovered/Resolved]
  - Gastrointestinal polyp haemorrhage [Recovered/Resolved]
  - Pyrexia [Recovered/Resolved]

NARRATIVE: CASE EVENT DATE: 20190514
